FAERS Safety Report 15031524 (Version 1)
Quarter: 2018Q2

REPORT INFORMATION
  Report Type: Spontaneous
  Country: US (occurrence: US)
  Receive Date: 20180529
  Receipt Date: 20180529
  Transmission Date: 20180711
  Serious: Yes (Hospitalization)
  Sender: FDA-Public Use
  Company Number: None

PATIENT
  Age: 66 Year
  Sex: Male

DRUGS (8)
  1. ENBREL [Suspect]
     Active Substance: ETANERCEPT
     Indication: RHEUMATOID ARTHRITIS
     Route: 058
     Dates: start: 20160106
  2. ATORVASTATIN [Concomitant]
     Active Substance: ATORVASTATIN
  3. BRILINTA [Concomitant]
     Active Substance: TICAGRELOR
  4. JANUVIA [Concomitant]
     Active Substance: SITAGLIPTIN PHOSPHATE
  5. FOLIC ACID. [Concomitant]
     Active Substance: FOLIC ACID
  6. NITROGLYCERIN. [Concomitant]
     Active Substance: NITROGLYCERIN
  7. METHOTREXATE. [Concomitant]
     Active Substance: METHOTREXATE
  8. METFORMIN [Concomitant]
     Active Substance: METFORMIN HYDROCHLORIDE

REACTIONS (1)
  - Stent placement [None]

NARRATIVE: CASE EVENT DATE: 201804
